FAERS Safety Report 18149636 (Version 4)
Quarter: 2022Q2

REPORT INFORMATION
  Report Type: Spontaneous
  Country: US (occurrence: None)
  Receive Date: 20200814
  Receipt Date: 20220628
  Transmission Date: 20220721
  Serious: Yes (Hospitalization, Other)
  Sender: FDA-Public Use
  Company Number: 2020SE99308

PATIENT
  Age: 51 Year
  Sex: Male
  Weight: 83.9 kg

DRUGS (85)
  1. NEXIUM 24HR [Suspect]
     Active Substance: ESOMEPRAZOLE MAGNESIUM
     Indication: Gastrooesophageal reflux disease
     Route: 048
  2. NEXIUM 24HR [Suspect]
     Active Substance: ESOMEPRAZOLE MAGNESIUM
     Indication: Gastrooesophageal reflux disease
     Dosage: OTC CAPSULE
     Route: 048
     Dates: start: 20171006
  3. NEXIUM [Suspect]
     Active Substance: ESOMEPRAZOLE MAGNESIUM
     Indication: Gastrooesophageal reflux disease
     Route: 048
     Dates: start: 2003
  4. NEXIUM [Suspect]
     Active Substance: ESOMEPRAZOLE MAGNESIUM
     Indication: Gastrooesophageal reflux disease
     Dosage: GENERIC
     Route: 065
  5. NEXIUM [Suspect]
     Active Substance: ESOMEPRAZOLE MAGNESIUM
     Indication: Gastrooesophageal reflux disease
     Dosage: GENERIC CAPSULE
     Route: 048
     Dates: start: 20191230
  6. NEXIUM [Suspect]
     Active Substance: ESOMEPRAZOLE MAGNESIUM
     Indication: Gastrooesophageal reflux disease
     Dosage: GENERIC CAPSULE
     Route: 048
     Dates: start: 20180829
  7. NEXIUM [Suspect]
     Active Substance: ESOMEPRAZOLE MAGNESIUM
     Indication: Gastrooesophageal reflux disease
     Dosage: GENERIC CAPSULE
     Route: 048
     Dates: start: 20171005
  8. NEXIUM [Suspect]
     Active Substance: ESOMEPRAZOLE MAGNESIUM
     Indication: Gastrooesophageal reflux disease
     Route: 048
     Dates: start: 2003, end: 202111
  9. OMEPRAZOLE [Suspect]
     Active Substance: OMEPRAZOLE
     Indication: Gastrooesophageal reflux disease
     Dosage: GENERIC
     Route: 065
     Dates: start: 201907, end: 202002
  10. OMEPRAZOLE [Suspect]
     Active Substance: OMEPRAZOLE
     Indication: Gastrooesophageal reflux disease
     Dosage: GENERIC-CAPSULE
     Route: 065
     Dates: start: 20190411, end: 202002
  11. OMEPRAZOLE [Suspect]
     Active Substance: OMEPRAZOLE
     Indication: Gastrooesophageal reflux disease
     Dosage: GENERIC
     Route: 065
     Dates: start: 20170908
  12. OMEPRAZOLE [Suspect]
     Active Substance: OMEPRAZOLE
     Indication: Gastrooesophageal reflux disease
     Dosage: GENERIC
     Route: 065
     Dates: start: 201907, end: 202002
  13. LANSOPRAZOLE [Suspect]
     Active Substance: LANSOPRAZOLE
     Indication: Gastrooesophageal reflux disease
     Dosage: GENERIC
     Route: 065
     Dates: start: 201508, end: 201509
  14. LANSOPRAZOLE [Suspect]
     Active Substance: LANSOPRAZOLE
     Indication: Gastrooesophageal reflux disease
     Dosage: GENERIC
     Route: 065
     Dates: start: 201509, end: 201510
  15. LANSOPRAZOLE [Suspect]
     Active Substance: LANSOPRAZOLE
     Indication: Gastrooesophageal reflux disease
     Dosage: GENERIC
     Route: 065
     Dates: start: 201510, end: 201511
  16. LANSOPRAZOLE [Suspect]
     Active Substance: LANSOPRAZOLE
     Indication: Gastrooesophageal reflux disease
     Dosage: GENERIC
     Route: 065
     Dates: start: 201511, end: 201603
  17. LANSOPRAZOLE [Suspect]
     Active Substance: LANSOPRAZOLE
     Indication: Gastrooesophageal reflux disease
     Dosage: GENERIC
     Route: 065
     Dates: start: 201511, end: 201603
  18. PANTOPRAZOLE [Suspect]
     Active Substance: PANTOPRAZOLE
     Indication: Gastrooesophageal reflux disease
     Dosage: GENERIC
     Route: 065
     Dates: start: 201506, end: 201509
  19. PANTOPRAZOLE [Suspect]
     Active Substance: PANTOPRAZOLE
     Indication: Gastrooesophageal reflux disease
     Dosage: GENERIC
     Route: 065
     Dates: start: 201509, end: 201510
  20. PANTOPRAZOLE [Suspect]
     Active Substance: PANTOPRAZOLE
     Indication: Gastrooesophageal reflux disease
     Dosage: GENERIC
     Route: 065
     Dates: start: 20170329
  21. PANTOPRAZOLE [Suspect]
     Active Substance: PANTOPRAZOLE
     Indication: Gastrooesophageal reflux disease
     Dosage: GENERIC
     Route: 065
     Dates: start: 20170908
  22. PANTOPRAZOLE [Suspect]
     Active Substance: PANTOPRAZOLE
     Indication: Gastrooesophageal reflux disease
     Dosage: GENERIC
     Route: 065
     Dates: start: 201508, end: 201509
  23. LOVASTATIN [Concomitant]
     Active Substance: LOVASTATIN
     Indication: Hyperlipidaemia
     Route: 065
     Dates: start: 2019
  24. AMLODIPINE [Concomitant]
     Active Substance: AMLODIPINE BESYLATE
     Indication: Hypertension
     Route: 065
     Dates: start: 2019
  25. ASPIRIN [Concomitant]
     Active Substance: ASPIRIN
     Indication: Cardiac disorder
     Route: 065
     Dates: start: 2003
  26. ASPIRIN [Concomitant]
     Active Substance: ASPIRIN
     Indication: Hypertension
     Route: 065
     Dates: start: 2003
  27. ASPIRIN [Concomitant]
     Active Substance: ASPIRIN
     Indication: Cardiac disorder
     Route: 065
     Dates: start: 2003, end: 202101
  28. ASPIRIN [Concomitant]
     Active Substance: ASPIRIN
     Indication: Hypertension
     Route: 065
     Dates: start: 2003, end: 202101
  29. ALBUTEROL [Concomitant]
     Active Substance: ALBUTEROL
     Indication: Asthma
     Route: 065
     Dates: start: 2003
  30. ALBUTEROL [Concomitant]
     Active Substance: ALBUTEROL
     Indication: Asthma
     Route: 065
     Dates: start: 2003, end: 202111
  31. FAMOTIDINE [Concomitant]
     Active Substance: FAMOTIDINE
     Route: 065
     Dates: start: 201602
  32. AMOXICILLIN [Concomitant]
     Active Substance: AMOXICILLIN
     Dates: start: 20170908
  33. PROMETHAZINE [Concomitant]
     Active Substance: PROMETHAZINE HYDROCHLORIDE
     Dates: start: 20191215
  34. AZITHROMYCIN [Concomitant]
     Active Substance: AZITHROMYCIN
     Dates: start: 20191214
  35. ONDANSETRON [Concomitant]
     Active Substance: ONDANSETRON
     Dates: start: 20191230
  36. ACETAMINOPHEN\OXYCODONE HYDROCHLORIDE [Concomitant]
     Active Substance: ACETAMINOPHEN\OXYCODONE HYDROCHLORIDE
     Dates: start: 20180921
  37. LOSARTAN [Concomitant]
     Active Substance: LOSARTAN
     Dates: start: 20170829
  38. LAMOTRIGINE [Concomitant]
     Active Substance: LAMOTRIGINE
     Dates: start: 20170829
  39. ATORVASTATIN [Concomitant]
     Active Substance: ATORVASTATIN
     Dates: start: 20170830
  40. IBUPROFEN [Concomitant]
     Active Substance: IBUPROFEN
     Dates: start: 20160918
  41. ALPRAZOLAM [Concomitant]
     Active Substance: ALPRAZOLAM
     Dates: start: 20161101
  42. MUCINEX [Concomitant]
     Active Substance: GUAIFENESIN
     Dates: start: 20161111
  43. GABAPENTIN [Concomitant]
     Active Substance: GABAPENTIN
     Dates: start: 20161206
  44. CHANTIX [Concomitant]
     Active Substance: VARENICLINE TARTRATE
     Dates: start: 20170203
  45. BENZONATATE [Concomitant]
     Active Substance: BENZONATATE
     Dates: start: 20160223
  46. ABILIFY [Concomitant]
     Active Substance: ARIPIPRAZOLE
     Dates: start: 20150410
  47. RISPERIDONE [Concomitant]
     Active Substance: RISPERIDONE
     Dates: start: 20150309
  48. DIVALPROEX SODIUM [Concomitant]
     Active Substance: DIVALPROEX SODIUM
     Dates: start: 20150220
  49. PRAZOSIN [Concomitant]
     Active Substance: PRAZOSIN
     Dates: start: 20150220
  50. OXAPROZIN [Concomitant]
     Active Substance: OXAPROZIN
     Dates: start: 20141231
  51. TRAMADOL HCL [Concomitant]
     Active Substance: TRAMADOL HYDROCHLORIDE
     Dates: start: 20140613
  52. SUCRALFATE [Concomitant]
     Active Substance: SUCRALFATE
     Dates: start: 20140515
  53. DICLOFENAC SODIUM [Concomitant]
     Active Substance: DICLOFENAC SODIUM
  54. NICOTINE [Concomitant]
     Active Substance: NICOTINE
  55. VICODIN [Concomitant]
     Active Substance: ACETAMINOPHEN\HYDROCODONE BITARTRATE
  56. DOCUSATE SODIUM\SENNA LEAF [Concomitant]
     Active Substance: DOCUSATE SODIUM\SENNA LEAF
  57. HALDOL [Concomitant]
     Active Substance: HALOPERIDOL
  58. FENTANYL [Concomitant]
     Active Substance: FENTANYL
  59. PROCTOFOAM [Concomitant]
     Active Substance: PRAMOXINE HYDROCHLORIDE
  60. SENNOSIDES [Concomitant]
     Active Substance: SENNOSIDES
  61. TIZANIDINE [Concomitant]
     Active Substance: TIZANIDINE
  62. FLUOXETINE [Concomitant]
     Active Substance: FLUOXETINE HYDROCHLORIDE
  63. SERTRALINE [Concomitant]
     Active Substance: SERTRALINE HYDROCHLORIDE
  64. PERCOCET [Concomitant]
     Active Substance: ACETAMINOPHEN\OXYCODONE HYDROCHLORIDE
  65. RIVAROXABAN [Concomitant]
     Active Substance: RIVAROXABAN
  66. POLYETHYLENE GLYCOL [Concomitant]
     Active Substance: POLYETHYLENE GLYCOL
  67. DULCOLAX NOS [Concomitant]
     Active Substance: BISACODYL OR DOCUSATE SODIUM
  68. HYDROCORTISONE [Concomitant]
     Active Substance: HYDROCORTISONE
  69. DOCUSATE SODIUM\SENNOSIDES [Concomitant]
     Active Substance: DOCUSATE SODIUM\SENNOSIDES
  70. VICODIN [Concomitant]
     Active Substance: ACETAMINOPHEN\HYDROCODONE BITARTRATE
  71. CODEINE\PROMETHAZINE [Concomitant]
     Active Substance: CODEINE\PROMETHAZINE
     Dates: start: 20191116
  72. VITAMINS [Concomitant]
     Active Substance: VITAMINS
  73. COLACE [Concomitant]
     Active Substance: DOCUSATE SODIUM
  74. BENZOCAINE [Concomitant]
     Active Substance: BENZOCAINE
  75. CHLORHEXIDINE [Concomitant]
     Active Substance: CHLORHEXIDINE
  76. FERROUS SULFATE [Concomitant]
     Active Substance: FERROUS SULFATE
  77. XARELTO [Concomitant]
     Active Substance: RIVAROXABAN
     Indication: Anticoagulant therapy
     Route: 065
     Dates: start: 20210112
  78. PREDNISOLONE [Concomitant]
     Active Substance: PREDNISOLONE
  79. CEPHALEXIN [Concomitant]
     Active Substance: CEPHALEXIN
  80. DIPHENHYDRAMINE [Concomitant]
     Active Substance: DIPHENHYDRAMINE
  81. FLUOCINONIDE [Concomitant]
     Active Substance: FLUOCINONIDE
  82. ERYTHROMYCIN [Concomitant]
     Active Substance: ERYTHROMYCIN
  83. HYDROXYZINE [Concomitant]
     Active Substance: HYDROXYZINE HYDROCHLORIDE
  84. TRAIMCINOLONE [Concomitant]
  85. TYLENOL [Concomitant]
     Active Substance: ACETAMINOPHEN
     Dates: start: 20180208

REACTIONS (1)
  - Chronic kidney disease [Not Recovered/Not Resolved]
